FAERS Safety Report 4305626-1 (Version None)
Quarter: 2004Q1

REPORT INFORMATION
  Report Type: 
  Country: None (occurrence: None)
  Receive Date: 20040226
  Receipt Date: 20031216
  Transmission Date: 20041129
  Serious: Yes (Hospitalization)
  Sender: FDA-Public Use
  Company Number: US-BRISTOL-MYERS SQUIBB COMPANY-12460226

PATIENT
  Age: 47 Year
  Sex: Female
  Weight: 134 kg

DRUGS (10)
  1. ABILIFY [Suspect]
     Indication: SCHIZOPHRENIA
     Route: 048
     Dates: start: 20031201, end: 20031214
  2. HALDOL [Concomitant]
  3. RISPERDAL [Concomitant]
     Dosage: 4 MG IN AM, AND 8 MG AT BEDTIME (FOR A LONG TIME). IN OCT BEDTIME DOSE WAS INCREASED
  4. NEURONTIN [Concomitant]
     Dosage: 800 MG IN AM, 16  MG AT BEDTIME
     Dates: start: 20030201
  5. SYNTHROID [Concomitant]
  6. VASOTEC [Concomitant]
  7. HYDROCHLOROTHIAZIDE [Concomitant]
  8. DIFORMIN [Concomitant]
  9. HUMULIN INSULIN [Concomitant]
     Dosage: 35 U IN AM, 25 U IN EVENING
  10. ANTIBIOTIC [Concomitant]

REACTIONS (8)
  - ABDOMINAL PAIN [None]
  - ABNORMAL BEHAVIOUR [None]
  - AGITATION [None]
  - BACK PAIN [None]
  - HYPONATRAEMIA [None]
  - NAUSEA [None]
  - POLYDIPSIA [None]
  - VOMITING [None]
